FAERS Safety Report 8357554-2 (Version None)
Quarter: 2012Q2

REPORT INFORMATION
  Report Type: 
  Country: None (occurrence: None)
  Receive Date: 20120514
  Receipt Date: 20110630
  Transmission Date: 20120825
  Serious: No
  Sender: FDA-Public Use
  Company Number: US-TEVA-2011003465

PATIENT
  Sex: Male
  Weight: 106.69 kg

DRUGS (5)
  1. ATIVAN [Concomitant]
     Dates: start: 20030101
  2. NUVIGIL [Suspect]
     Indication: NARCOLEPSY
     Route: 048
     Dates: start: 20090701
  3. SEROQUEL [Concomitant]
     Dates: start: 20080101
  4. CYMBALTA [Concomitant]
     Dates: start: 20090101
  5. NUVIGIL [Suspect]
     Indication: BIPOLAR DISORDER

REACTIONS (4)
  - TINNITUS [None]
  - MUSCLE TIGHTNESS [None]
  - DYSPNOEA [None]
  - HEADACHE [None]
